FAERS Safety Report 10977784 (Version 1)
Quarter: 2015Q2

REPORT INFORMATION
  Report Type: Spontaneous
  Country: US (occurrence: None)
  Receive Date: 20150401
  Receipt Date: 20150401
  Transmission Date: 20150821
  Serious: Yes (Disabling, Other)
  Sender: FDA-Public Use
  Company Number: None

PATIENT
  Sex: Male

DRUGS (1)
  1. CHANTIX [Suspect]
     Active Substance: VARENICLINE TARTRATE
     Indication: SMOKING CESSATION THERAPY
     Dosage: BEGIN 1 PER DAY, THEN 2 PER DAY
     Route: 048
     Dates: start: 2012, end: 2013

REACTIONS (6)
  - Stress [None]
  - Homicide [None]
  - Mental impairment [None]
  - Anxiety [None]
  - Imprisonment [None]
  - Anger [None]

NARRATIVE: CASE EVENT DATE: 2012
